FAERS Safety Report 10441294 (Version 1)
Quarter: 2014Q3

REPORT INFORMATION
  Report Type: Spontaneous
  Country: CH (occurrence: CH)
  Receive Date: 20140909
  Receipt Date: 20140909
  Transmission Date: 20150326
  Serious: Yes (Hospitalization)
  Sender: FDA-Public Use
  Company Number: CH-SA-2014SA119998

PATIENT
  Age: 85 Year
  Sex: Female

DRUGS (16)
  1. MEPHANOL [Concomitant]
     Active Substance: ALLOPURINOL
  2. FERRO ^SANOL^ [Concomitant]
  3. PARAGOL [Concomitant]
  4. SEROQUEL [Concomitant]
     Active Substance: QUETIAPINE FUMARATE
  5. ENALAPRIL MALEATE. [Concomitant]
     Active Substance: ENALAPRIL MALEATE
  6. MOVICOL [Concomitant]
     Active Substance: POLYETHYLENE GLYCOL 3350\POTASSIUM CHLORIDE\SODIUM BICARBONATE\SODIUM CHLORIDE
  7. FRAGMIN [Interacting]
     Active Substance: DALTEPARIN SODIUM
     Indication: THROMBOSIS PROPHYLAXIS
     Route: 058
     Dates: start: 20140406
  8. DAFALGAN [Concomitant]
     Active Substance: ACETAMINOPHEN
  9. SORTIS [Concomitant]
     Active Substance: ATORVASTATIN
  10. POTASSIUM CHLORIDE. [Suspect]
     Active Substance: POTASSIUM CHLORIDE
     Indication: ELECTROLYTE SUBSTITUTION THERAPY
     Route: 048
  11. CLOMETHIAZOLE [Concomitant]
     Active Substance: CLOMETHIAZOLE
  12. TEMESTA [Concomitant]
     Active Substance: LORAZEPAM
  13. TRITTICO [Concomitant]
     Active Substance: TRAZODONE HYDROCHLORIDE
  14. PLAVIX [Suspect]
     Active Substance: CLOPIDOGREL BISULFATE
     Indication: CEREBRAL INFARCTION
     Route: 048
     Dates: start: 1998, end: 20140420
  15. NOVALGIN [Concomitant]
     Active Substance: METAMIZOLE SODIUM
  16. EXELON [Concomitant]
     Active Substance: RIVASTIGMINE TARTRATE

REACTIONS (4)
  - Haemorrhagic anaemia [Recovering/Resolving]
  - Gastric ulcer [Recovering/Resolving]
  - Depressed level of consciousness [Recovering/Resolving]
  - Melaena [Recovered/Resolved]

NARRATIVE: CASE EVENT DATE: 20140418
